FAERS Safety Report 21067640 (Version 1)
Quarter: 2022Q3

REPORT INFORMATION
  Report Type: Spontaneous
  Country: AR (occurrence: AR)
  Receive Date: 20220712
  Receipt Date: 20220712
  Transmission Date: 20221027
  Serious: No
  Sender: FDA-Public Use
  Company Number: AR-PFIZER INC-PV202200006706

PATIENT
  Age: 9 Year
  Sex: Female

DRUGS (1)
  1. GENOTROPIN [Suspect]
     Active Substance: SOMATROPIN
     Indication: Foetal growth restriction
     Dosage: 1 TO 1.4MG, 7 TIMES PER WEEK
     Dates: start: 20200804

REACTIONS (7)
  - Injection site pain [Not Recovered/Not Resolved]
  - Injection site bruising [Not Recovered/Not Resolved]
  - Needle issue [Unknown]
  - Skin laceration [Not Recovered/Not Resolved]
  - Device mechanical issue [Unknown]
  - Product prescribing error [Unknown]
  - Expired device used [Unknown]

NARRATIVE: CASE EVENT DATE: 20200804
